FAERS Safety Report 8686602 (Version 2)
Quarter: 2013Q4

REPORT INFORMATION
  Report Type: Spontaneous
  Country: US (occurrence: US)
  Receive Date: 20120726
  Receipt Date: 20131031
  Transmission Date: 20140711
  Serious: Yes (Hospitalization, Other)
  Sender: FDA-Public Use
  Company Number: US-009507513-1207USA009562

PATIENT
  Sex: Male

DRUGS (10)
  1. JANUVIA [Suspect]
     Dosage: 100 MG, QD
     Route: 048
  2. RASILEZ [Suspect]
     Dosage: 150 MG, QD
     Route: 048
  3. SITAGLIPTIN PHOSPHATE [Concomitant]
  4. DIAMICRON [Concomitant]
  5. DIPROSALIC [Concomitant]
  6. JANUMET [Concomitant]
     Route: 048
  7. GLUCOPHAGE [Concomitant]
  8. IPERTEN [Concomitant]
  9. COTAREG [Concomitant]
  10. STAGID [Concomitant]

REACTIONS (4)
  - Dermatosis [Unknown]
  - Periorbital disorder [Unknown]
  - Face oedema [Unknown]
  - Erythema [Unknown]
